FAERS Safety Report 10662761 (Version 2)
Quarter: 2014Q4

REPORT INFORMATION
  Report Type: Spontaneous
  Country: DE (occurrence: DE)
  Receive Date: 20141218
  Receipt Date: 20141219
  Transmission Date: 20150529
  Serious: Yes (Other)
  Sender: FDA-Public Use
  Company Number: DE-PFIZER INC-2014344818

PATIENT
  Age: 39 Year
  Sex: Female
  Weight: 54 kg

DRUGS (7)
  1. SERTRALINE HCL [Suspect]
     Active Substance: SERTRALINE HYDROCHLORIDE
     Indication: DEPRESSION
     Dosage: 200 MG, 1X/DAY, 0. - 38. GESTATIONAL WEEK
     Route: 048
     Dates: start: 20131006, end: 20140629
  2. GABAPENTIN. [Suspect]
     Active Substance: GABAPENTIN
     Dosage: 350 MG, DAILY UNTIL WEEK 35+3
     Route: 048
  3. DIPHENHYDRAMINE [Suspect]
     Active Substance: DIPHENHYDRAMINE
     Indication: ANXIETY DISORDER
     Dosage: 50 MG, 1X/DAY, 0. - 38. GESTATIONAL WEEK
     Route: 048
     Dates: start: 20131006, end: 20140629
  4. FOLIC ACID. [Concomitant]
     Active Substance: FOLIC ACID
     Indication: PROPHYLAXIS OF NEURAL TUBE DEFECT
     Dosage: UNK
     Route: 048
  5. GABAPENTIN. [Suspect]
     Active Substance: GABAPENTIN
     Indication: RESTLESS LEGS SYNDROME
     Dosage: 300 MG, DAILY
     Route: 048
     Dates: start: 20131006
  6. CEFUROXIM [Concomitant]
     Active Substance: CEFUROXIME
     Indication: INFECTION PROPHYLAXIS
     Dosage: UNKNOWN DOSE, INTRAPARTUM
     Route: 017
  7. GABAPENTIN. [Suspect]
     Active Substance: GABAPENTIN
     Dosage: 400 MG, DAILY
     Route: 048
     Dates: end: 20140629

REACTIONS (1)
  - Vanishing twin syndrome [Recovered/Resolved]
